FAERS Safety Report 22752711 (Version 17)
Quarter: 2024Q1

REPORT INFORMATION
  Report Type: Report from Study
  Country: CO (occurrence: CO)
  Receive Date: 20230726
  Receipt Date: 20240202
  Transmission Date: 20240410
  Serious: Yes (Death, Hospitalization, Disabling, Other)
  Sender: FDA-Public Use
  Company Number: CO-TAKEDA-2023TUS057906

PATIENT
  Age: 58 Year
  Sex: Male
  Weight: 45 kg

DRUGS (1)
  1. VEDOLIZUMAB [Suspect]
     Active Substance: VEDOLIZUMAB
     Indication: Crohn^s disease
     Dosage: 300 MILLIGRAM
     Route: 042
     Dates: start: 20230524

REACTIONS (33)
  - Pneumonia [Fatal]
  - Crohn^s disease [Unknown]
  - Delirium [Recovering/Resolving]
  - Neoplasm malignant [Unknown]
  - Thrombosis [Unknown]
  - Disorientation [Recovering/Resolving]
  - Mobility decreased [Recovering/Resolving]
  - Oedema peripheral [Unknown]
  - Gastrointestinal disorder [Unknown]
  - Skin cancer [Recovered/Resolved]
  - Amoeba test positive [Unknown]
  - Renal cancer [Recovered/Resolved]
  - Influenza [Unknown]
  - Hypophagia [Recovering/Resolving]
  - Thirst [Unknown]
  - Malnutrition [Recovering/Resolving]
  - Oesophageal pain [Unknown]
  - General physical health deterioration [Unknown]
  - Asthenia [Recovering/Resolving]
  - Anxiety [Unknown]
  - Weight decreased [Unknown]
  - Drug ineffective [Unknown]
  - Gastrooesophageal reflux disease [Recovering/Resolving]
  - Memory impairment [Unknown]
  - Coccydynia [Unknown]
  - Emotional distress [Unknown]
  - Viral infection [Unknown]
  - Somnolence [Unknown]
  - Feeling cold [Unknown]
  - Muscular weakness [Recovering/Resolving]
  - Constipation [Unknown]
  - Nausea [Unknown]
  - Diarrhoea [Recovering/Resolving]

NARRATIVE: CASE EVENT DATE: 20230606
